FAERS Safety Report 6333440-4 (Version None)
Quarter: 2009Q3

REPORT INFORMATION
  Report Type: 
  Country: None (occurrence: None)
  Receive Date: 20090828
  Receipt Date: 20090819
  Transmission Date: 20100115
  Serious: Yes (Other)
  Sender: FDA-Public Use
  Company Number: PHHY2009AU35022

PATIENT
  Sex: Male

DRUGS (1)
  1. CLOZARIL [Suspect]
     Indication: SCHIZOPHRENIA
     Dosage: 50 MG MANE, 125 MG NOCTE
     Dates: start: 20090804

REACTIONS (6)
  - C-REACTIVE PROTEIN INCREASED [None]
  - ELECTROCARDIOGRAM T WAVE INVERSION [None]
  - LYMPHOCYTOSIS [None]
  - NEUTROPHILIA [None]
  - PYREXIA [None]
  - SINUS TACHYCARDIA [None]
